FAERS Safety Report 14345975 (Version 1)
Quarter: 2018Q1

REPORT INFORMATION
  Report Type: Spontaneous
  Country: US (occurrence: US)
  Receive Date: 20180103
  Receipt Date: 20180103
  Transmission Date: 20180509
  Serious: Yes (Death, Other)
  Sender: FDA-Public Use
  Company Number: US-009507513-1712USA014636

PATIENT
  Age: 56 Year
  Sex: Female

DRUGS (9)
  1. ACETAMINOPHEN (+) OXYCODONE HYDROCHLORIDE [Suspect]
     Active Substance: ACETAMINOPHEN\OXYCODONE HYDROCHLORIDE
  2. ALPRAZOLAM. [Suspect]
     Active Substance: ALPRAZOLAM
  3. PROPRANOLOL [Suspect]
     Active Substance: PROPRANOLOL HYDROCHLORIDE
  4. IBUPROFEN. [Suspect]
     Active Substance: IBUPROFEN
  5. ONDANSETRON [Suspect]
     Active Substance: ONDANSETRON
  6. ESCITALOPRAM [Suspect]
     Active Substance: ESCITALOPRAM OXALATE
  7. LAMOTRIGINE. [Suspect]
     Active Substance: LAMOTRIGINE
  8. ACYCLOVIR. [Suspect]
     Active Substance: ACYCLOVIR
  9. SINGULAIR [Suspect]
     Active Substance: MONTELUKAST SODIUM
     Route: 048

REACTIONS (1)
  - Death [Fatal]
